FAERS Safety Report 6433813-5 (Version None)
Quarter: 2009Q4

REPORT INFORMATION
  Report Type: 
  Country: None (occurrence: None)
  Receive Date: 20091110
  Receipt Date: 20091102
  Transmission Date: 20100525
  Serious: Yes (Hospitalization)
  Sender: FDA-Public Use
  Company Number: NZ-ASTRAZENECA-2009SE23598

PATIENT
  Age: 26 Year
  Sex: Male

DRUGS (5)
  1. QUETIAPINE [Suspect]
     Route: 048
     Dates: start: 20040428, end: 20040504
  2. FLUCLOXACILLIN [Concomitant]
     Route: 042
     Dates: start: 20040430, end: 20040504
  3. ENOXACIN [Concomitant]
     Route: 058
     Dates: start: 20040418
  4. RANITIDINE [Concomitant]
     Route: 048
     Dates: start: 20040417
  5. CEFAZOLIN [Concomitant]
     Route: 042
     Dates: start: 20040419

REACTIONS (1)
  - NEUTROPENIA [None]
